FAERS Safety Report 19786866 (Version 2)
Quarter: 2021Q3

REPORT INFORMATION
  Report Type: Report from Study
  Country: DE (occurrence: DE)
  Receive Date: 20210903
  Receipt Date: 20210915
  Transmission Date: 20211014
  Serious: Yes (Other)
  Sender: FDA-Public Use
  Company Number: DE-TAKEDA-2021TUS054816

PATIENT
  Age: 78 Year
  Sex: Female

DRUGS (3)
  1. ELOTUZUMAB. [Suspect]
     Active Substance: ELOTUZUMAB
     Indication: PLASMA CELL MYELOMA
     Dosage: UNK
     Route: 065
  2. DEXAMETHASONE. [Suspect]
     Active Substance: DEXAMETHASONE
     Indication: PLASMA CELL MYELOMA
     Dosage: UNK
     Route: 065
  3. BORTEZOMIB. [Suspect]
     Active Substance: BORTEZOMIB
     Indication: PLASMA CELL MYELOMA
     Dosage: UNK
     Route: 065

REACTIONS (1)
  - Drug ineffective [Unknown]
